FAERS Safety Report 6681916-2 (Version None)
Quarter: 2010Q2

REPORT INFORMATION
  Report Type: 
  Country: None (occurrence: None)
  Receive Date: 20100409
  Receipt Date: 20100323
  Transmission Date: 20101027
  Serious: Yes (Hospitalization)
  Sender: FDA-Public Use
  Company Number: NL-DEXPHARM-20100411

PATIENT
  Age: 61 Year
  Sex: Female

DRUGS (2)
  1. OMEPRAZOLE [Suspect]
     Dosage: 40 MG MILLIGRAM(S) SEP. DOSAGES / INTERVAL: 1 IN 1 DAY
  2. FUROSEMIDE\SPIRONOLACTONE [Concomitant]

REACTIONS (6)
  - HYPOCALCAEMIA [None]
  - HYPOKALAEMIA [None]
  - HYPOMAGNESAEMIA [None]
  - HYPOPARATHYROIDISM [None]
  - NAUSEA [None]
  - VOMITING [None]
